FAERS Safety Report 21614330 (Version 3)
Quarter: 2022Q4

REPORT INFORMATION
  Report Type: Spontaneous
  Country: JP (occurrence: JP)
  Receive Date: 20221118
  Receipt Date: 20221229
  Transmission Date: 20230113
  Serious: Yes (Hospitalization, Other)
  Sender: FDA-Public Use
  Company Number: JP-MYLANLABS-2022M1127467

PATIENT
  Age: 99 Year
  Sex: Male

DRUGS (3)
  1. MAGNESIUM OXIDE [Suspect]
     Active Substance: MAGNESIUM OXIDE
     Indication: Constipation
     Dosage: 3000 MILLIGRAM, TID
     Route: 065
  2. AMLODIPINE [Suspect]
     Active Substance: AMLODIPINE BESYLATE
     Indication: Hypertension
     Dosage: 5 MILLIGRAM, QD
     Route: 065
  3. MEMANTINE [Suspect]
     Active Substance: MEMANTINE
     Indication: Dementia
     Dosage: 10 MILLIGRAM, QD
     Route: 065

REACTIONS (4)
  - Cardiac failure acute [Recovered/Resolved]
  - Hypermagnesaemia [Recovered/Resolved]
  - Hypotension [Recovered/Resolved]
  - Bradyarrhythmia [Recovering/Resolving]
